FAERS Safety Report 18432054 (Version 2)
Quarter: 2020Q4

REPORT INFORMATION
  Report Type: Spontaneous
  Country: SE (occurrence: SE)
  Receive Date: 20201027
  Receipt Date: 20201105
  Transmission Date: 20210114
  Serious: Yes (Hospitalization, Other)
  Sender: FDA-Public Use
  Company Number: SE-JNJFOC-20201031880

PATIENT
  Age: 71 Year
  Sex: Male

DRUGS (11)
  1. RIVAROXABAN [Suspect]
     Active Substance: RIVAROXABAN
     Dosage: 15 MG, QD,?XARELTO 15 MG
     Route: 048
     Dates: start: 20201014, end: 20201015
  2. RIVAROXABAN [Suspect]
     Active Substance: RIVAROXABAN
     Dosage: 20 MG, QD,?XARELTO 20 MG
     Route: 048
     Dates: start: 20201013, end: 20201013
  3. TADALAFIL. [Concomitant]
     Active Substance: TADALAFIL
     Dosage: UNK
  4. ATORVASTATIN [Concomitant]
     Active Substance: ATORVASTATIN
     Dosage: UNK
  5. RIVAROXABAN [Suspect]
     Active Substance: RIVAROXABAN
     Dosage: 20 MG, QD,?XARELTO 20 MG
     Route: 048
     Dates: start: 20201019
  6. ENALAPRIL [Concomitant]
     Active Substance: ENALAPRIL
     Indication: BLOOD PRESSURE DECREASED
     Dosage: UNK
  7. FELODIPINE. [Concomitant]
     Active Substance: FELODIPINE
     Indication: BLOOD PRESSURE DECREASED
     Dosage: UNK
  8. FRAGMIN [Concomitant]
     Active Substance: DALTEPARIN SODIUM
     Dosage: 7500 IU, BID
     Dates: start: 20201007, end: 20201012
  9. RIVAROXABAN [Suspect]
     Active Substance: RIVAROXABAN
     Indication: THROMBOSIS
     Dosage: 15 MG, BID,?XARELTO 15 MG
     Route: 048
     Dates: start: 20200921, end: 2020
  10. RIVAROXABAN [Suspect]
     Active Substance: RIVAROXABAN
     Dosage: 15 MG, QD,?XARELTO 15 MG
     Route: 048
     Dates: start: 20201017, end: 20201018
  11. RIVAROXABAN [Suspect]
     Active Substance: RIVAROXABAN
     Dosage: 20 MG, QD,?XARELTO 20 MG
     Route: 048
     Dates: start: 20201016, end: 20201016

REACTIONS (10)
  - Intentional product misuse [Unknown]
  - Chromaturia [Unknown]
  - Haematuria [Unknown]
  - Chromaturia [Unknown]
  - Haemorrhage urinary tract [Unknown]
  - Chromaturia [Unknown]
  - Intentional product misuse [Unknown]
  - Chromaturia [Recovered/Resolved]
  - Haemorrhage urinary tract [Unknown]
  - Haemorrhage urinary tract [Unknown]

NARRATIVE: CASE EVENT DATE: 2020
